FAERS Safety Report 7538984-5 (Version None)
Quarter: 2011Q2

REPORT INFORMATION
  Report Type: 
  Country: None (occurrence: None)
  Receive Date: 20110610
  Receipt Date: 20110516
  Transmission Date: 20111010
  Serious: Yes (Hospitalization, Other)
  Sender: FDA-Public Use
  Company Number: US-BAYER-2011-007942

PATIENT
  Age: 36 Year
  Sex: Female
  Weight: 68.027 kg

DRUGS (7)
  1. DICYCLOMINE [Concomitant]
     Dosage: UNK
     Dates: start: 20081016, end: 20091230
  2. YAZ [Suspect]
     Indication: ACNE
     Dosage: UNK
     Dates: start: 20020101, end: 20100101
  3. YAZ [Suspect]
     Indication: CONTRACEPTION
  4. DROSPIRENONE AND ETHINYL ESTRADIOL [Suspect]
     Indication: ACNE
  5. DROSPIRENONE AND ETHINYL ESTRADIOL [Suspect]
     Indication: CONTRACEPTION
  6. YASMIN [Suspect]
     Indication: ACNE
     Dosage: UNK
     Dates: start: 20020101, end: 20100101
  7. YASMIN [Suspect]
     Indication: CONTRACEPTION

REACTIONS (3)
  - ABDOMINAL DISTENSION [None]
  - GALLBLADDER PAIN [None]
  - CHOLECYSTITIS CHRONIC [None]
